FAERS Safety Report 7295460-5 (Version None)
Quarter: 2011Q1

REPORT INFORMATION
  Report Type: 
  Country: None (occurrence: None)
  Receive Date: 20110216
  Receipt Date: 20110118
  Transmission Date: 20110831
  Serious: No
  Sender: FDA-Public Use
  Company Number: US-ABBOTT-11P-163-0698761-00

PATIENT
  Sex: Male
  Weight: 113.5 kg

DRUGS (5)
  1. SIMCOR [Suspect]
     Indication: PRODUCT USED FOR UNKNOWN INDICATION
     Dates: start: 20101116
  2. TERAZOSIN [Concomitant]
     Indication: PRODUCT USED FOR UNKNOWN INDICATION
  3. BENICAR [Concomitant]
     Indication: PRODUCT USED FOR UNKNOWN INDICATION
  4. TRICOR [Concomitant]
     Indication: PRODUCT USED FOR UNKNOWN INDICATION
  5. M.V.I. [Concomitant]
     Indication: PRODUCT USED FOR UNKNOWN INDICATION

REACTIONS (1)
  - SKIN BURNING SENSATION [None]
